FAERS Safety Report 6166132-5 (Version None)
Quarter: 2009Q2

REPORT INFORMATION
  Report Type: 
  Country: None (occurrence: None)
  Receive Date: 20090422
  Receipt Date: 20090422
  Transmission Date: 20091009
  Serious: Yes (Hospitalization)
  Sender: FDA-Public Use
  Company Number: None

PATIENT
  Sex: Female
  Weight: 64 kg

DRUGS (6)
  1. CYCLOPHOSPHAMIDE [Suspect]
     Dosage: 1210 MG
  2. DOXORUBICIN HYDROCHLORIDE [Suspect]
     Dosage: 64.4 MG
  3. ETOPOSIDE [Suspect]
     Dosage: 322 MG
  4. G-CSF (FILGRASTIM, AMGEN) [Suspect]
     Dosage: 2100 MCG
  5. PREDNISONE TAB [Suspect]
     Dosage: 1000 MG
  6. VINCRISTINE SULFATE [Suspect]
     Dosage: 2.56 MG

REACTIONS (2)
  - COLITIS [None]
  - NEUTROPENIA [None]
